FAERS Safety Report 6783024-9 (Version None)
Quarter: 2010Q2

REPORT INFORMATION
  Report Type: 
  Country: None (occurrence: None)
  Receive Date: 20100622
  Receipt Date: 20100611
  Transmission Date: 20101027
  Serious: Yes (Hospitalization, Other)
  Sender: FDA-Public Use
  Company Number: US-BAYER-201021441NA

PATIENT
  Age: 36 Year
  Sex: Female
  Weight: 64 kg

DRUGS (1)
  1. YAZ [Suspect]
     Indication: CONTRACEPTION
     Dosage: RECORDS ARE INCONSISTENT - 1 TABLET DAILY
     Route: 048
     Dates: start: 20100302, end: 20100407

REACTIONS (2)
  - DYSPNOEA [None]
  - PULMONARY EMBOLISM [None]
